FAERS Safety Report 6388360-6 (Version None)
Quarter: 2009Q4

REPORT INFORMATION
  Report Type: 
  Country: None (occurrence: None)
  Receive Date: 20091005
  Receipt Date: 20090930
  Transmission Date: 20100525
  Serious: Yes (Life-Threatening)
  Sender: FDA-Public Use
  Company Number: GB-SANOFI-SYNTHELABO-A01200909985

PATIENT
  Age: 78 Year
  Sex: Male
  Weight: 65 kg

DRUGS (4)
  1. FOLINIC ACID [Concomitant]
     Indication: COLORECTAL CANCER METASTATIC
     Dosage: 350 MG
     Route: 042
     Dates: start: 20090727, end: 20090727
  2. OXALIPLATIN [Suspect]
     Indication: COLON CANCER METASTATIC
     Dosage: 72.5 MG
     Route: 042
     Dates: start: 20090727, end: 20090727
  3. FLUOROURACIL [Concomitant]
     Indication: COLORECTAL CANCER METASTATIC
     Dosage: 512.5 MG
     Route: 042
     Dates: start: 20090727, end: 20090729
  4. CARDIAC MEDICATIONS (NOS) [Concomitant]
     Dosage: UNK

REACTIONS (1)
  - MYOCARDIAL INFARCTION [None]
